FAERS Safety Report 6700740-5 (Version None)
Quarter: 2010Q2

REPORT INFORMATION
  Report Type: 
  Country: None (occurrence: None)
  Receive Date: 20100428
  Receipt Date: 20100423
  Transmission Date: 20101027
  Serious: Yes (Death, Other)
  Sender: FDA-Public Use
  Company Number: KR-CELGENEUS-090-21880-10041922

PATIENT
  Sex: Male

DRUGS (2)
  1. REVLIMID [Suspect]
     Indication: MULTIPLE MYELOMA
     Route: 048
     Dates: start: 20100211, end: 20100302
  2. REVLIMID [Suspect]
     Route: 048
     Dates: start: 20100301

REACTIONS (2)
  - PANCYTOPENIA [None]
  - PNEUMONIA [None]
